FAERS Safety Report 11023966 (Version 2)
Quarter: 2015Q2

REPORT INFORMATION
  Report Type: Spontaneous
  Country: US (occurrence: US)
  Receive Date: 20150413
  Receipt Date: 20150525
  Transmission Date: 20150821
  Serious: No
  Sender: FDA-Public Use
  Company Number: US-JNJFOC-20130316274

PATIENT
  Sex: Male
  Weight: 149.69 kg

DRUGS (2)
  1. ASPIRIN. [Concomitant]
     Active Substance: ASPIRIN
     Route: 048
     Dates: start: 2011
  2. LEVAQUIN [Suspect]
     Active Substance: LEVOFLOXACIN
     Indication: LOCALISED INFECTION
     Route: 048
     Dates: start: 2007, end: 2007

REACTIONS (1)
  - Incorrect drug administration duration [Not Recovered/Not Resolved]

NARRATIVE: CASE EVENT DATE: 2007
